FAERS Safety Report 22305126 (Version 1)
Quarter: 2023Q2

REPORT INFORMATION
  Report Type: Report from Study
  Country: BR (occurrence: BR)
  Receive Date: 20230510
  Receipt Date: 20230510
  Transmission Date: 20230722
  Serious: Yes (Death, Hospitalization, Disabling, Other)
  Sender: FDA-Public Use
  Company Number: BR-002147023-NVSC2023BR107025

PATIENT
  Age: 94 Year
  Sex: Female

DRUGS (5)
  1. EXELON [Suspect]
     Active Substance: RIVASTIGMINE TARTRATE
     Indication: Dementia Alzheimer^s type
     Dosage: 27 MG, QD, PATCH 15 CM2, EXTENDED RELEASE, 1 PATCH PER DAY
     Route: 062
     Dates: start: 2011, end: 20230419
  2. EXELON [Suspect]
     Active Substance: RIVASTIGMINE TARTRATE
     Dosage: 27 MG, QD, PATCH (5)CM2, EXTENDED RELEASE
     Route: 003
     Dates: start: 20230420
  3. MEMANTINE HYDROCHLORIDE [Concomitant]
     Active Substance: MEMANTINE HYDROCHLORIDE
     Indication: Depression
     Dosage: 10 MG, BID (12/12 HOURS)
     Route: 048
     Dates: end: 20230430
  4. GLICLAZIDE [Concomitant]
     Active Substance: GLICLAZIDE
     Indication: Diabetes mellitus
     Dosage: 2 DOSAGE FORM, QD, 2 CAPSULES A DAY (12/12 HOURS)
     Route: 065
     Dates: end: 20230430
  5. PIOGLITAZONE [Concomitant]
     Active Substance: PIOGLITAZONE
     Indication: Diabetes mellitus
     Dosage: 1 DOSAGE FORM, 1 TABLET AFTER LUNCH, QD
     Route: 065
     Dates: end: 20230430

REACTIONS (18)
  - Septic shock [Fatal]
  - Dementia Alzheimer^s type [Fatal]
  - Haemoglobin decreased [Unknown]
  - Dyspnoea [Unknown]
  - Hypotension [Unknown]
  - Pain [Unknown]
  - Anaemia [Unknown]
  - Heart rate increased [Unknown]
  - Facial bones fracture [Unknown]
  - Fall [Unknown]
  - Sepsis [Unknown]
  - Urinary tract infection [Unknown]
  - Feeding disorder [Unknown]
  - Eye movement disorder [Unknown]
  - Speech disorder [Unknown]
  - Nervous system disorder [Unknown]
  - Tremor [Unknown]
  - Product prescribing issue [Unknown]

NARRATIVE: CASE EVENT DATE: 20190901
